FAERS Safety Report 4868621-X (Version None)
Quarter: 2005Q4

REPORT INFORMATION
  Report Type: 
  Country: None (occurrence: None)
  Receive Date: 20051223
  Receipt Date: 20051214
  Transmission Date: 20060501
  Serious: Yes (Death, Other)
  Sender: FDA-Public Use
  Company Number: 2005135105

PATIENT
  Age: 77 Year
  Sex: Male

DRUGS (1)
  1. NEURONTIN [Suspect]
     Indication: TRIGEMINAL NEURALGIA
     Dates: start: 20010501

REACTIONS (11)
  - APHTHOUS STOMATITIS [None]
  - COMPLETED SUICIDE [None]
  - DIZZINESS POSTURAL [None]
  - DRUG INEFFECTIVE [None]
  - GUN SHOT WOUND [None]
  - HYPOTENSION [None]
  - INTENTIONAL SELF-INJURY [None]
  - MENTAL STATUS CHANGES [None]
  - RESPIRATORY TRACT INFECTION [None]
  - SYNCOPE [None]
  - TEMPOROMANDIBULAR JOINT SYNDROME [None]
